FAERS Safety Report 25761006 (Version 1)
Quarter: 2025Q3

REPORT INFORMATION
  Report Type: Report from Study
  Country: US (occurrence: US)
  Receive Date: 20250904
  Receipt Date: 20250904
  Transmission Date: 20251020
  Serious: Yes (Other)
  Sender: BIOCODEX
  Company Number: US-BIOCODEX2-2025001378

PATIENT
  Sex: Male
  Weight: 41.8 kg

DRUGS (3)
  1. DIACOMIT [Suspect]
     Active Substance: STIRIPENTOL
     Indication: Epilepsy
     Dosage: TAKE 1000MG AND 1250MG BY MOUTH IN TWO SEPARATE DOSES EACH DAY
     Route: 048
     Dates: start: 20220815
  2. DIACOMIT [Suspect]
     Active Substance: STIRIPENTOL
     Indication: Epilepsy
     Dosage: TAKE 1000MG AND 1250MG BY MOUTH IN TWO SEPARATE DOSES EACH DAY
     Route: 048
     Dates: start: 20220815
  3. CLOBAZAM [Concomitant]
     Active Substance: CLOBAZAM
     Indication: Product used for unknown indication
     Route: 065

REACTIONS (2)
  - Drug ineffective [Unknown]
  - Off label use [Unknown]

NARRATIVE: CASE EVENT DATE: 20220815
